FAERS Safety Report 6575704-5 (Version None)
Quarter: 2010Q1

REPORT INFORMATION
  Report Type: 
  Country: None (occurrence: None)
  Receive Date: 20100209
  Receipt Date: 20100202
  Transmission Date: 20100710
  Serious: Yes (Other)
  Sender: FDA-Public Use
  Company Number: ES-BRISTOL-MYERS SQUIBB COMPANY-14958508

PATIENT
  Age: 55 Year
  Sex: Male

DRUGS (2)
  1. TAXOL [Suspect]
     Indication: LUNG ADENOCARCINOMA
     Dosage: 150 MG 1 VIAL 25/ML 1
     Route: 042
     Dates: start: 20090513, end: 20090513
  2. ALOXI [Concomitant]
     Route: 042
     Dates: start: 20090513

REACTIONS (6)
  - BACK PAIN [None]
  - CHEST PAIN [None]
  - COUGH [None]
  - FEELING HOT [None]
  - HYPERTENSION [None]
  - INCORRECT DRUG ADMINISTRATION RATE [None]
